FAERS Safety Report 20278556 (Version 1)
Quarter: 2022Q1

REPORT INFORMATION
  Report Type: Other
  Country: US (occurrence: US)
  Receive Date: 20220103
  Receipt Date: 20220103
  Transmission Date: 20220423
  Serious: No
  Sender: FDA-Public Use
  Company Number: US-NEUROCRINE BIOSCIENCES INC.-2021NBI07425

PATIENT

DRUGS (8)
  1. INGREZZA [Suspect]
     Active Substance: VALBENAZINE
     Indication: Tardive dyskinesia
     Dosage: 80 MILLIGRAM, QD
     Route: 048
     Dates: start: 20191009
  2. INGREZZA [Suspect]
     Active Substance: VALBENAZINE
     Dosage: 40 MILLIGRAM, QD
     Route: 048
     Dates: start: 20191002, end: 20191008
  3. NALTREXONE [Concomitant]
     Active Substance: NALTREXONE
     Indication: Decreased appetite
     Dosage: 50 MILLIGRAM
     Route: 048
     Dates: start: 20210507
  4. BUPROPION [Concomitant]
     Active Substance: BUPROPION
     Indication: Depression
     Dosage: 100 MILLIGRAM, BID
     Route: 048
     Dates: start: 20120828
  5. ADDERALL [Concomitant]
     Active Substance: AMPHETAMINE ASPARTATE\AMPHETAMINE SULFATE\DEXTROAMPHETAMINE SACCHARATE\DEXTROAMPHETAMINE SULFATE
     Indication: Attention deficit hyperactivity disorder
     Dosage: 30 MILLIGRAM, BID
     Route: 048
     Dates: start: 20180910
  6. LEVOMEFOLATE CALCIUM [Concomitant]
     Active Substance: LEVOMEFOLATE CALCIUM
     Indication: Depression
     Dosage: 10 MILLIGRAM (DAILY)
     Route: 048
     Dates: start: 20200527
  7. SINGULAIR [Concomitant]
     Active Substance: MONTELUKAST SODIUM
     Dosage: 10 MILLIGRAM
  8. IRON [Concomitant]
     Active Substance: IRON
     Dosage: 60 MILLIGRAM

REACTIONS (2)
  - Gastric banding [Unknown]
  - Post procedural infection [Unknown]

NARRATIVE: CASE EVENT DATE: 20211201
